FAERS Safety Report 23089982 (Version 1)
Quarter: 2023Q4

REPORT INFORMATION
  Report Type: Report from Study
  Country: AU (occurrence: AU)
  Receive Date: 20231020
  Receipt Date: 20231020
  Transmission Date: 20240110
  Serious: Yes (Other)
  Sender: FDA-Public Use
  Company Number: AU-002147023-NVSC2023AU073266

PATIENT
  Sex: Male

DRUGS (1)
  1. KESIMPTA [Suspect]
     Active Substance: OFATUMUMAB
     Indication: Relapsing-remitting multiple sclerosis
     Dosage: 20 MG, QMO
     Route: 058
     Dates: start: 20230317

REACTIONS (7)
  - Multiple sclerosis [Unknown]
  - Condition aggravated [Unknown]
  - Paraesthesia oral [Unknown]
  - Feeling abnormal [Unknown]
  - Peripheral swelling [Unknown]
  - Headache [Unknown]
  - Chest discomfort [Recovered/Resolved]
